FAERS Safety Report 19078442 (Version 1)
Quarter: 2021Q1

REPORT INFORMATION
  Report Type: Spontaneous
  Country: US (occurrence: US)
  Receive Date: 20210330
  Receipt Date: 20210330
  Transmission Date: 20210420
  Serious: Yes (Hospitalization, Other)
  Sender: FDA-Public Use
  Company Number: None

PATIENT

DRUGS (5)
  1. METOPROLOL TARTRATE. [Concomitant]
     Active Substance: METOPROLOL TARTRATE
  2. APIXABAN [Concomitant]
     Active Substance: APIXABAN
  3. LEVETIRACETAM. [Suspect]
     Active Substance: LEVETIRACETAM
  4. FUROSEMIDE. [Suspect]
     Active Substance: FUROSEMIDE
  5. MIDODRINE [Concomitant]
     Active Substance: MIDODRINE

REACTIONS (6)
  - Subdural haematoma [None]
  - Subarachnoid haemorrhage [None]
  - Haemorrhage [None]
  - Skin laceration [None]
  - Haematoma [None]
  - Fall [None]

NARRATIVE: CASE EVENT DATE: 20191126
